FAERS Safety Report 4659429-9 (Version None)
Quarter: 2005Q2

REPORT INFORMATION
  Report Type: 
  Country: None (occurrence: None)
  Receive Date: 20050412
  Receipt Date: 20050204
  Transmission Date: 20051028
  Serious: No
  Sender: FDA-Public Use
  Company Number: 2005S1000018

PATIENT
  Age: 42 Year
  Sex: Male
  Weight: 190.9 kg

DRUGS (4)
  1. CUBICIN [Suspect]
     Indication: CELLULITIS
     Dosage: 764 MG; Q24H; IV
     Route: 042
     Dates: start: 20050119, end: 20050120
  2. CUBICIN [Suspect]
     Indication: STAPHYLOCOCCAL INFECTION
     Dosage: 764 MG; Q24H; IV
     Route: 042
     Dates: start: 20050119, end: 20050120
  3. VANCOMYCIN [Concomitant]
  4. CLINDAMYCIN [Concomitant]

REACTIONS (1)
  - RASH [None]
